FAERS Safety Report 9133390 (Version 1)
Quarter: 2013Q1

REPORT INFORMATION
  Report Type: Report from Study
  Country: US (occurrence: US)
  Receive Date: 20130301
  Receipt Date: 20130301
  Transmission Date: 20140127
  Serious: Yes (Hospitalization, Other)
  Sender: FDA-Public Use
  Company Number: US-ROCHE-1165610

PATIENT
  Age: 72 None
  Sex: Female

DRUGS (1)
  1. HERCEPTIN [Suspect]
     Indication: BREAST CANCER
     Route: 042
     Dates: start: 201010

REACTIONS (10)
  - Chest pain [Recovering/Resolving]
  - Headache [Unknown]
  - Metastatic neoplasm [Unknown]
  - Asthenia [Unknown]
  - Neoplasm [Not Recovered/Not Resolved]
  - Cardiac disorder [Unknown]
  - Pulmonary embolism [Unknown]
  - Arthralgia [Unknown]
  - Pain in extremity [Unknown]
  - Cardiac disorder [Unknown]
